FAERS Safety Report 8173977-9 (Version None)
Quarter: 2012Q1

REPORT INFORMATION
  Report Type: 
  Country: None (occurrence: None)
  Receive Date: 20120229
  Receipt Date: 20120223
  Transmission Date: 20120608
  Serious: Yes (Hospitalization)
  Sender: FDA-Public Use
  Company Number: US-ROCHE-1042871

PATIENT
  Sex: Female

DRUGS (2)
  1. MYCOPHENOLATE MOFETIL (CELLCEPT) [Suspect]
     Indication: HEART TRANSPLANT
  2. PROGRAF [Suspect]
     Indication: HEART TRANSPLANT

REACTIONS (2)
  - SMALL INTESTINAL OBSTRUCTION [None]
  - DIALYSIS [None]
